FAERS Safety Report 18589281 (Version 1)
Quarter: 2020Q4

REPORT INFORMATION
  Report Type: Spontaneous
  Country: CN (occurrence: CN)
  Receive Date: 20201208
  Receipt Date: 20201208
  Transmission Date: 20210114
  Serious: Yes (Hospitalization, Other)
  Sender: FDA-Public Use
  Company Number: CN-SUN PHARMACEUTICAL INDUSTRIES LTD-2020R1-270160

PATIENT
  Age: 47 Year
  Sex: Male

DRUGS (1)
  1. DECITABINE. [Suspect]
     Active Substance: DECITABINE
     Indication: IMMUNE THROMBOCYTOPENIA
     Dosage: 10 MILLIGRAM, DAILY
     Route: 065

REACTIONS (1)
  - Thrombotic microangiopathy [Recovered/Resolved]
